FAERS Safety Report 7703307-5 (Version None)
Quarter: 2011Q3

REPORT INFORMATION
  Report Type: 
  Country: None (occurrence: None)
  Receive Date: 20110823
  Receipt Date: 20110809
  Transmission Date: 20111222
  Serious: Yes (Hospitalization)
  Sender: FDA-Public Use
  Company Number: GB-ELI_LILLY_AND_COMPANY-GB201107005599

PATIENT
  Sex: Female

DRUGS (6)
  1. WARFARIN SODIUM [Concomitant]
     Dosage: UNK, PRN
  2. FORTEO [Suspect]
     Indication: OSTEOPOROSIS
     Dosage: 20 UG, QD
     Route: 058
     Dates: start: 20110401
  3. FUROSEMIDE [Concomitant]
     Indication: OEDEMA
     Dosage: 40 MG, BID
     Route: 048
  4. LANSOPRAZOLE [Concomitant]
     Indication: DYSPEPSIA
     Dosage: UNK, QD
  5. LISINOPRIL [Concomitant]
     Indication: BLOOD PRESSURE
     Dosage: 5 MG, QD
     Route: 048
  6. SIMVASTATIN [Concomitant]
     Indication: BLOOD CHOLESTEROL
     Dosage: 20 MG, QD

REACTIONS (5)
  - FALL [None]
  - PAIN IN EXTREMITY [None]
  - RIB FRACTURE [None]
  - DIZZINESS [None]
  - HIP FRACTURE [None]
